FAERS Safety Report 5493252-0 (Version None)
Quarter: 2007Q4

REPORT INFORMATION
  Report Type: 
  Country: None (occurrence: None)
  Receive Date: 20071022
  Receipt Date: 20071022
  Transmission Date: 20080405
  Serious: No
  Sender: FDA-Public Use
  Company Number: None

PATIENT
  Age: 70 Year
  Sex: Male
  Weight: 74 kg

DRUGS (2)
  1. VENOFER [Suspect]
     Indication: IRON DEFICIENCY
     Dosage: 300 MG ONCE IV
     Route: 042
     Dates: start: 20070914
  2. VENOFER [Suspect]
     Indication: RENAL FAILURE CHRONIC
     Dosage: 300 MG ONCE IV
     Route: 042
     Dates: start: 20070914

REACTIONS (3)
  - CHILLS [None]
  - HEART RATE DECREASED [None]
  - INFUSION RELATED REACTION [None]
